FAERS Safety Report 8778081 (Version 1)
Quarter: 2012Q4

REPORT INFORMATION
  Report Type: 
  Country: US (occurrence: US)
  Receive Date: 20120912
  Receipt Date: 20120912
  Transmission Date: 20130627
  Serious: Yes (Death)
  Sender: FDA-Public Use
  Company Number: US-COVIDIEN/TYCO HEALTHCARE/MALLINCKRODT-T201203394

PATIENT
  Age: 18 Month
  Sex: Female

DRUGS (1)
  1. ROXICODONE [Suspect]
     Dosage: UNK

REACTIONS (2)
  - Accidental exposure to product by child [Fatal]
  - Accidental overdose [Fatal]
